FAERS Safety Report 4925536-6 (Version None)
Quarter: 2006Q1

REPORT INFORMATION
  Report Type: 
  Country: None (occurrence: None)
  Receive Date: 20060228
  Receipt Date: 20050314
  Transmission Date: 20060701
  Serious: No
  Sender: FDA-Public Use
  Company Number: US-GLAXOSMITHKLINE-A0549628A

PATIENT
  Age: 38 Year
  Sex: Male

DRUGS (4)
  1. LAMICTAL [Suspect]
     Indication: BIPOLAR DISORDER
     Dosage: 200MG PER DAY
     Route: 048
  2. ABILIFY [Concomitant]
     Dosage: 10MG PER DAY
     Route: 065
  3. COGENTIN [Concomitant]
     Dosage: .5MG PER DAY
     Route: 065
  4. VALIUM [Concomitant]
     Dosage: 2MG UNKNOWN
     Route: 065

REACTIONS (1)
  - RASH [None]
